FAERS Safety Report 5692333-6 (Version None)
Quarter: 2008Q2

REPORT INFORMATION
  Report Type: 
  Country: None (occurrence: None)
  Receive Date: 20080402
  Receipt Date: 20080326
  Transmission Date: 20081010
  Serious: No
  Sender: FDA-Public Use
  Company Number: US-BAXTER-2008BH002428

PATIENT
  Age: 23 Year
  Sex: Female
  Weight: 54 kg

DRUGS (9)
  1. HEPARIN SODIUM [Suspect]
     Indication: CYSTITIS INTERSTITIAL
     Route: 043
     Dates: start: 20071226, end: 20080312
  2. LIDOCAINE HYDROCHLORIDE [Suspect]
     Indication: CYSTITIS INTERSTITIAL
     Dosage: DOSE UNIT:UNKNOWN
     Route: 065
     Dates: start: 20071226
  3. MARCAINE                                /USA/ [Concomitant]
     Indication: CYSTITIS INTERSTITIAL
     Dosage: DOSE UNIT:UNKNOWN
     Route: 065
     Dates: start: 20071226
  4. SODIUM BICARBONATE [Concomitant]
     Indication: CYSTITIS INTERSTITIAL
     Dosage: DOSE UNIT:UNKNOWN
     Route: 065
     Dates: start: 20071226
  5. KENALOG [Concomitant]
     Indication: CYSTITIS INTERSTITIAL
     Dosage: DOSE UNIT:UNKNOWN
     Route: 065
     Dates: start: 20071226
  6. SEASONIQUE [Concomitant]
     Indication: CONTRACEPTION
     Dosage: DOSE UNIT:UNKNOWN
     Route: 065
  7. AMITRIPTYLINE HCL [Concomitant]
     Indication: DRUG USE FOR UNKNOWN INDICATION
     Dosage: DOSE UNIT:UNKNOWN
     Route: 065
  8. PRE-LIEF [Concomitant]
     Indication: PHYTOTHERAPY
     Dosage: DOSE UNIT:UNKNOWN
     Route: 065
  9. ABRAXA [Concomitant]
     Indication: DRUG USE FOR UNKNOWN INDICATION
     Dosage: DOSE UNIT:UNKNOWN
     Route: 065

REACTIONS (5)
  - DIZZINESS [None]
  - HYPOAESTHESIA ORAL [None]
  - NAUSEA [None]
  - SYNCOPE [None]
  - VISION BLURRED [None]
